FAERS Safety Report 6066023-4 (Version None)
Quarter: 2009Q1

REPORT INFORMATION
  Report Type: 
  Country: None (occurrence: None)
  Receive Date: 20090205
  Receipt Date: 20090127
  Transmission Date: 20090719
  Serious: Yes (Hospitalization)
  Sender: FDA-Public Use
  Company Number: FR-PFIZER INC-2009162476

PATIENT

DRUGS (1)
  1. SUTENT [Suspect]
     Indication: RENAL CANCER
     Dates: start: 20061205, end: 20080101

REACTIONS (6)
  - ABDOMINAL PAIN UPPER [None]
  - CARDIAC FAILURE [None]
  - CHEST PAIN [None]
  - CYTOLYTIC HEPATITIS [None]
  - DRY SKIN [None]
  - STOMATITIS [None]
